FAERS Safety Report 20835980 (Version 2)
Quarter: 2022Q2

REPORT INFORMATION
  Report Type: Spontaneous
  Country: US (occurrence: US)
  Receive Date: 20220516
  Receipt Date: 20220603
  Transmission Date: 20220721
  Serious: Yes (Other)
  Sender: FDA-Public Use
  Company Number: US-BRISTOL-MYERS SQUIBB COMPANY-2022-032975

PATIENT
  Age: 66 Year
  Sex: Female
  Weight: 74.4 kg

DRUGS (4)
  1. HYDROXYUREA [Suspect]
     Active Substance: HYDROXYUREA
     Indication: Product used for unknown indication
     Route: 065
  2. PEGASYS [Suspect]
     Active Substance: PEGINTERFERON ALFA-2A
     Indication: Polycythaemia vera
     Dosage: 1X/WEEK
     Route: 065
     Dates: start: 20220101, end: 20220321
  3. PEGASYS [Suspect]
     Active Substance: PEGINTERFERON ALFA-2A
     Indication: Hereditary haemochromatosis
     Route: 065
     Dates: start: 20220328, end: 20220404
  4. PEGASYS [Suspect]
     Active Substance: PEGINTERFERON ALFA-2A
     Route: 065
     Dates: start: 20220411, end: 20220411

REACTIONS (11)
  - Weight decreased [Recovered/Resolved]
  - Stomatitis [Unknown]
  - Oral pain [Recovered/Resolved with Sequelae]
  - Oral candidiasis [Recovered/Resolved]
  - Fungal foot infection [Recovered/Resolved]
  - Oropharyngeal pain [Unknown]
  - Feeling cold [Unknown]
  - Hypersensitivity [Recovered/Resolved]
  - Insomnia [Unknown]
  - Fatigue [Unknown]
  - Nausea [Unknown]

NARRATIVE: CASE EVENT DATE: 20220101
